FAERS Safety Report 8136885-5 (Version None)
Quarter: 2012Q1

REPORT INFORMATION
  Report Type: 
  Country: None (occurrence: None)
  Receive Date: 20120214
  Receipt Date: 20120206
  Transmission Date: 20120608
  Serious: Yes (Other)
  Sender: FDA-Public Use
  Company Number: US-ASTRAZENECA-2011SE01195

PATIENT
  Age: 61 Year
  Sex: Female

DRUGS (8)
  1. ENABLEX [Concomitant]
  2. COUMADIN [Concomitant]
  3. RHINOCORT [Suspect]
     Route: 045
  4. KLOR-CON [Concomitant]
  5. HYDROCHLOROT [Concomitant]
  6. PULMICORT FLEXHALER [Suspect]
     Route: 055
  7. ZOLPIDEM [Concomitant]
  8. TRAMADOL HCL [Concomitant]

REACTIONS (5)
  - MALAISE [None]
  - DEEP VEIN THROMBOSIS [None]
  - ASTHMA [None]
  - THROMBOSIS [None]
  - UPPER RESPIRATORY TRACT INFECTION [None]
